FAERS Safety Report 8936034 (Version 1)
Quarter: 2012Q4

REPORT INFORMATION
  Report Type: 
  Country: US (occurrence: US)
  Receive Date: 20121130
  Receipt Date: 20121130
  Transmission Date: 20130627
  Serious: No
  Sender: FDA-Public Use
  Company Number: US-ABBOTT-12P-163-0989249-00

PATIENT
  Age: 90 Year
  Sex: Male

DRUGS (1)
  1. ANDROGEL [Suspect]
     Indication: PRODUCT USED FOR UNKNOWN INDICATION

REACTIONS (3)
  - Drug administered at inappropriate site [Unknown]
  - Hair growth abnormal [Not Recovered/Not Resolved]
  - Breast enlargement [Not Recovered/Not Resolved]
